FAERS Safety Report 13390607 (Version 3)
Quarter: 2017Q3

REPORT INFORMATION
  Report Type: Spontaneous
  Country: US (occurrence: US)
  Receive Date: 20170331
  Receipt Date: 20170728
  Transmission Date: 20171127
  Serious: Yes (Death)
  Sender: FDA-Public Use
  Company Number: US-ALKERMES INC.-ALK-2017-001110

PATIENT
  Age: 24 Year
  Sex: Female

DRUGS (1)
  1. VIVITROL [Suspect]
     Active Substance: NALTREXONE
     Indication: DRUG DEPENDENCE
     Dosage: 380 MG, QMO
     Route: 030
     Dates: start: 20161025

REACTIONS (3)
  - Overdose [Fatal]
  - Euphoric mood [Unknown]
  - Drug abuse [Unknown]

NARRATIVE: CASE EVENT DATE: 20170301
